FAERS Safety Report 6201564-8 (Version None)
Quarter: 2009Q2

REPORT INFORMATION
  Report Type: 
  Country: None (occurrence: None)
  Receive Date: 20090519
  Receipt Date: 20090508
  Transmission Date: 20091009
  Serious: Yes (Hospitalization)
  Sender: FDA-Public Use
  Company Number: 2009SP009282

PATIENT
  Age: 75 Year
  Sex: Male
  Weight: 70 kg

DRUGS (13)
  1. TEMODAL [Suspect]
     Indication: GLIOBLASTOMA
     Dosage: 180 MG; QD; PO; 180 MG; QD; 220 MG; QD
     Dates: start: 20090303, end: 20090309
  2. TEMODAL [Suspect]
     Indication: GLIOBLASTOMA
     Dosage: 180 MG; QD; PO; 180 MG; QD; 220 MG; QD
     Dates: start: 20090317, end: 20090323
  3. TEMODAL [Suspect]
     Indication: GLIOBLASTOMA
     Dosage: 180 MG; QD; PO; 180 MG; QD; 220 MG; QD
     Dates: start: 20090331, end: 20090406
  4. TEMODAL [Suspect]
     Indication: GLIOBLASTOMA
     Dosage: 180 MG; QD; PO; 180 MG; QD; 220 MG; QD
     Dates: start: 20090414, end: 20090420
  5. DIOVAN [Concomitant]
  6. NORVASC [Concomitant]
  7. ALNA [Concomitant]
  8. TORSEMIDE [Concomitant]
  9. DILATREND [Concomitant]
  10. MELNEURIN [Concomitant]
  11. REMERGIL [Concomitant]
  12. KEPPRA [Concomitant]
  13. GRANISETRON HCL [Concomitant]

REACTIONS (3)
  - C-REACTIVE PROTEIN INCREASED [None]
  - DYSPNOEA [None]
  - PRODUCTIVE COUGH [None]
